FAERS Safety Report 13785956 (Version 1)
Quarter: 2017Q3

REPORT INFORMATION
  Report Type: Spontaneous
  Country: CH (occurrence: CH)
  Receive Date: 20170725
  Receipt Date: 20170725
  Transmission Date: 20171127
  Serious: Yes (Death, Other)
  Sender: FDA-Public Use
  Company Number: CH-BAXTER-2017BAX028149

PATIENT
  Age: 47 Year
  Sex: Male

DRUGS (12)
  1. DAUNORUBICIN [Suspect]
     Active Substance: DAUNORUBICIN
     Indication: ACUTE MYELOID LEUKAEMIA
     Dosage: FIRST CYCLE;DAY 1-3
     Route: 065
     Dates: start: 20161228
  2. ENDOXAN 1 G [Suspect]
     Active Substance: CYCLOPHOSPHAMIDE
     Indication: ACUTE MYELOID LEUKAEMIA
     Dosage: 60MG/KG/D; DAY 6 TO 7
     Route: 041
     Dates: start: 20170404, end: 20170405
  3. ARAC [Suspect]
     Active Substance: CYTARABINE
     Dosage: DAY 1 TO 6
     Route: 065
     Dates: start: 20170120
  4. ARAC [Suspect]
     Active Substance: CYTARABINE
     Indication: ACUTE MYELOID LEUKAEMIA
     Dosage: DAY 1 TO 7
     Route: 065
     Dates: start: 20161228
  5. ENDOXAN 1 G [Suspect]
     Active Substance: CYCLOPHOSPHAMIDE
     Indication: PROPHYLAXIS AGAINST GRAFT VERSUS HOST DISEASE
     Route: 065
  6. DOXORUBICIN [Suspect]
     Active Substance: DOXORUBICIN
     Indication: ACUTE MYELOID LEUKAEMIA
     Dosage: CYCLE 2; DAY 1,3,5
     Route: 065
     Dates: start: 20170120
  7. AMBISOME [Suspect]
     Active Substance: AMPHOTERICIN B
     Indication: ACUTE MYELOID LEUKAEMIA
     Route: 065
     Dates: start: 20170330, end: 20170409
  8. BUSILVEX [Suspect]
     Active Substance: BUSULFAN
     Indication: ACUTE MYELOID LEUKAEMIA
     Dosage: 0.8MG/KG 4X/D; DAY 1 TO5; 16 DOSES IN TOTAL
     Route: 041
     Dates: start: 20170330, end: 20170404
  9. METHOTREXATE FARMOS [Suspect]
     Active Substance: METHOTREXATE
     Indication: PROPHYLAXIS AGAINST GRAFT VERSUS HOST DISEASE
     Dosage: 3 SEPARATE DOSAGES
     Route: 041
     Dates: start: 20170408, end: 20170413
  10. VFEND [Suspect]
     Active Substance: VORICONAZOLE
     Indication: ACUTE MYELOID LEUKAEMIA
     Dosage: LOADING DOSE 6 MG/KG ON DAY 1, AFTERWARDS 4MG/KG 12-HOURLY
     Route: 065
     Dates: start: 20170410, end: 20170419
  11. ECALTA [Suspect]
     Active Substance: ANIDULAFUNGIN
     Indication: BRONCHOPULMONARY ASPERGILLOSIS
     Route: 041
     Dates: start: 20170421, end: 20170426
  12. SANDIMMUN INFUSIONSKONZENTRAT [Suspect]
     Active Substance: CYCLOSPORINE
     Indication: PROPHYLAXIS AGAINST GRAFT VERSUS HOST DISEASE
     Dosage: FORM OF ADMIN: INFUSION AMPOULES
     Route: 041
     Dates: start: 20170504

REACTIONS (11)
  - Catheter site infection [Unknown]
  - Cytogenetic abnormality [Unknown]
  - Aplasia [Unknown]
  - Graft versus host disease in skin [Unknown]
  - Acute myeloid leukaemia [Unknown]
  - Pulmonary alveolar haemorrhage [Fatal]
  - Febrile neutropenia [Unknown]
  - Respiratory failure [Fatal]
  - Acute kidney injury [Unknown]
  - Pneumonia [Unknown]
  - Staphylococcal bacteraemia [Unknown]

NARRATIVE: CASE EVENT DATE: 201704
